FAERS Safety Report 25764562 (Version 1)
Quarter: 2025Q3

REPORT INFORMATION
  Report Type: Spontaneous
  Country: US (occurrence: US)
  Receive Date: 20250905
  Receipt Date: 20250905
  Transmission Date: 20251020
  Serious: No
  Sender: DOMPE FARMACEUTICI
  Company Number: US-FARMAPROD-202501-0203

PATIENT
  Sex: Male

DRUGS (9)
  1. OXERVATE [Suspect]
     Active Substance: CENEGERMIN-BKBJ
     Indication: Neurotrophic keratopathy
     Route: 047
     Dates: start: 20250116
  2. OXERVATE [Suspect]
     Active Substance: CENEGERMIN-BKBJ
  3. BENAZEPRIL/HYDROCHLOROTHIAZIDE ACTAVIS [Concomitant]
  4. OMEPRAZOLE [Concomitant]
     Active Substance: OMEPRAZOLE
  5. PERPHENAZINE [Concomitant]
     Active Substance: PERPHENAZINE
  6. CEPHALEXIN [Concomitant]
     Active Substance: CEPHALEXIN
  7. NAPROXEN [Concomitant]
     Active Substance: NAPROXEN
  8. AMITRIPTYLINE HYDROCHLORIDE [Concomitant]
     Active Substance: AMITRIPTYLINE HYDROCHLORIDE
  9. ALLOPURINOL [Concomitant]
     Active Substance: ALLOPURINOL

REACTIONS (9)
  - Ocular hyperaemia [Unknown]
  - Photophobia [Unknown]
  - Ocular discomfort [Unknown]
  - Eye pain [Unknown]
  - Eye irritation [Unknown]
  - Lacrimation increased [Unknown]
  - Eye swelling [Not Recovered/Not Resolved]
  - Eye pain [Unknown]
  - Adverse reaction [Unknown]
